FAERS Safety Report 15220620 (Version 11)
Quarter: 2020Q3

REPORT INFORMATION
  Report Type: Spontaneous
  Country: US (occurrence: US)
  Receive Date: 20180731
  Receipt Date: 20200923
  Transmission Date: 20201102
  Serious: Yes (Hospitalization, Other)
  Sender: FDA-Public Use
  Company Number: US-SA-2018SA133730

PATIENT

DRUGS (4)
  1. AUBAGIO [Suspect]
     Active Substance: TERIFLUNOMIDE
     Indication: MULTIPLE SCLEROSIS
     Dosage: 14 MG,QD
     Route: 048
     Dates: start: 20170901
  2. AUBAGIO [Suspect]
     Active Substance: TERIFLUNOMIDE
     Dosage: 14 MG,QD
     Route: 048
     Dates: start: 20180116, end: 201801
  3. AUBAGIO [Suspect]
     Active Substance: TERIFLUNOMIDE
     Dosage: 14 MG,QD
     Route: 048
     Dates: start: 20180123
  4. GILENYA [Concomitant]
     Active Substance: FINGOLIMOD HYDROCHLORIDE
     Dosage: UNK UNK,UNK

REACTIONS (26)
  - Cataract [Not Recovered/Not Resolved]
  - Spinal osteoarthritis [Not Recovered/Not Resolved]
  - Muscular dystrophy [Unknown]
  - Muscle spasticity [Unknown]
  - Fatigue [Not Recovered/Not Resolved]
  - Suspected COVID-19 [Unknown]
  - Mumps [Unknown]
  - Nasopharyngitis [Not Recovered/Not Resolved]
  - Arthropod bite [Unknown]
  - Depression [Not Recovered/Not Resolved]
  - Unevaluable event [Recovering/Resolving]
  - Hypersomnia [Unknown]
  - Mood altered [Not Recovered/Not Resolved]
  - Peroneal nerve palsy [Recovered/Resolved]
  - Unevaluable event [Not Recovered/Not Resolved]
  - Tremor [Unknown]
  - Sleep apnoea syndrome [Not Recovered/Not Resolved]
  - Gait disturbance [Not Recovered/Not Resolved]
  - Respiratory tract congestion [Unknown]
  - Herpes zoster [Not Recovered/Not Resolved]
  - Influenza [Not Recovered/Not Resolved]
  - Sepsis [Not Recovered/Not Resolved]
  - Peroneal nerve palsy [Unknown]
  - Visual impairment [Not Recovered/Not Resolved]
  - Dry mouth [Not Recovered/Not Resolved]
  - Urinary tract infection [Not Recovered/Not Resolved]

NARRATIVE: CASE EVENT DATE: 2018
